FAERS Safety Report 9867948 (Version 1)
Quarter: 2014Q1

REPORT INFORMATION
  Report Type: Spontaneous
  Country: US (occurrence: None)
  Receive Date: 20140203
  Receipt Date: 20140203
  Transmission Date: 20141002
  Serious: No
  Sender: FDA-Public Use
  Company Number: None

PATIENT
  Sex: 0

DRUGS (1)
  1. HEPARIN [Suspect]

REACTIONS (6)
  - Prothrombin time prolonged [None]
  - International normalised ratio increased [None]
  - Activated partial thromboplastin time prolonged [None]
  - Incorrect dose administered by device [None]
  - Accidental overdose [None]
  - Device malfunction [None]
